FAERS Safety Report 8446583 (Version 9)
Quarter: 2013Q4

REPORT INFORMATION
  Report Type: Spontaneous
  Country: US (occurrence: US)
  Receive Date: 20120308
  Receipt Date: 20131118
  Transmission Date: 20140711
  Serious: Yes (Hospitalization, Other)
  Sender: FDA-Public Use
  Company Number: US-BIOGENIDEC-2012BI007874

PATIENT
  Age: 51 Year
  Sex: Female

DRUGS (2)
  1. TYSABRI [Suspect]
     Indication: MULTIPLE SCLEROSIS
     Route: 042
     Dates: start: 20080104
  2. BACLOFEN [Concomitant]
     Indication: MUSCLE SPASTICITY

REACTIONS (1)
  - Breast cancer in situ [Recovered/Resolved]
